FAERS Safety Report 6991375-8 (Version None)
Quarter: 2010Q3

REPORT INFORMATION
  Report Type: 
  Country: None (occurrence: None)
  Receive Date: 20100916
  Receipt Date: 20090714
  Transmission Date: 20110219
  Serious: Yes (Other)
  Sender: FDA-Public Use
  Company Number: US-WYE-H10152009

PATIENT
  Sex: Male

DRUGS (1)
  1. TORISEL [Suspect]
     Indication: GLIOBLASTOMA
     Route: 042
     Dates: start: 20090401, end: 20090701

REACTIONS (1)
  - IMPAIRED HEALING [None]
